FAERS Safety Report 9445245 (Version 2)
Quarter: 2013Q3

REPORT INFORMATION
  Report Type: Spontaneous
  Country: CN (occurrence: None)
  Receive Date: 20130802
  Receipt Date: 20130910
  Transmission Date: 20140515
  Serious: Yes (Hospitalization)
  Sender: FDA-Public Use
  Company Number: 2013P1013462

PATIENT
  Sex: Female

DRUGS (1)
  1. ALBENDAZOLE [Suspect]
     Indication: HELMINTHIC INFECTION
     Dosage: 2 TABLETS
     Route: 048

REACTIONS (4)
  - Pyrexia [None]
  - Asthenia [None]
  - Overdose [None]
  - Transaminases increased [None]
